FAERS Safety Report 12207786 (Version 5)
Quarter: 2018Q2

REPORT INFORMATION
  Report Type: Report from Study
  Country: US (occurrence: US)
  Receive Date: 20160324
  Receipt Date: 20180629
  Transmission Date: 20180711
  Serious: No
  Sender: FDA-Public Use
  Company Number: PHEH2016US007128

PATIENT
  Age: 55 Year
  Sex: Female

DRUGS (2)
  1. ENTRESTO [Suspect]
     Active Substance: SACUBITRIL\VALSARTAN
     Indication: CARDIAC FAILURE CONGESTIVE
     Dosage: 50 MG (SACUBITRIL 24 MG/ VALSARTAN 26 MG), BID
     Route: 048
     Dates: start: 20151228
  2. ENTRESTO [Suspect]
     Active Substance: SACUBITRIL\VALSARTAN
     Dosage: 2 DF(SACUBITRIL 49 MG/ VALSARTAN 51 MG), DAILY
     Route: 065
     Dates: start: 2017

REACTIONS (6)
  - Dyspnoea [Recovering/Resolving]
  - Cough [Unknown]
  - Heart rate irregular [Unknown]
  - Blood pressure increased [Recovering/Resolving]
  - Sinus disorder [Unknown]
  - Ejection fraction decreased [Unknown]

NARRATIVE: CASE EVENT DATE: 201607
